FAERS Safety Report 10529459 (Version 1)
Quarter: 2014Q4

REPORT INFORMATION
  Report Type: Spontaneous
  Country: GR (occurrence: GR)
  Receive Date: 20141021
  Receipt Date: 20141021
  Transmission Date: 20150528
  Serious: Yes (Other)
  Sender: FDA-Public Use
  Company Number: GR-009507513-1410GRC005611

PATIENT
  Age: 72 Year
  Sex: Male
  Weight: 52 kg

DRUGS (12)
  1. MORPHINE [Concomitant]
     Active Substance: MORPHINE
     Dosage: 4 MG, UNK
     Route: 030
  2. ROPIVACAINE [Concomitant]
     Active Substance: ROPIVACAINE
     Dosage: 12 ML, UNK
  3. EPINEPHRINE. [Concomitant]
     Active Substance: EPINEPHRINE
     Dosage: 1/200,000
  4. ONDANSETRON [Concomitant]
     Active Substance: ONDANSETRON
     Dosage: 8 MG, UNK
     Route: 048
  5. LIDOCAINE. [Concomitant]
     Active Substance: LIDOCAINE
     Dosage: 3 ML, UNK
  6. ROCURONIUM BROMIDE. [Suspect]
     Active Substance: ROCURONIUM BROMIDE
     Indication: INDUCTION OF ANAESTHESIA
     Dosage: 40 MG, UNK
  7. ELECTROLYTES (UNSPECIFIED) (+) SODIUM LACTATE [Concomitant]
     Dosage: 600 ML, UNK
  8. PROPOFOL. [Concomitant]
     Active Substance: PROPOFOL
     Indication: INDUCTION OF ANAESTHESIA
     Dosage: 100 MG, UNK
  9. SEVOFLURANE. [Concomitant]
     Active Substance: SEVOFLURANE
  10. DICLOFENAC [Concomitant]
     Active Substance: DICLOFENAC
     Dosage: 50 MG, UNK
  11. INSULIN [Concomitant]
     Active Substance: INSULIN NOS
  12. OXYGEN. [Concomitant]
     Active Substance: OXYGEN

REACTIONS (2)
  - Paraparesis [Recovering/Resolving]
  - Blood pressure decreased [Unknown]
